FAERS Safety Report 10398397 (Version 3)
Quarter: 2014Q3

REPORT INFORMATION
  Report Type: Report from Study
  Country: JP (occurrence: JP)
  Receive Date: 20140821
  Receipt Date: 20140918
  Transmission Date: 20150326
  Serious: Yes (Other)
  Sender: FDA-Public Use
  Company Number: JP-SA-2014SA109250

PATIENT
  Age: 76 Year
  Sex: Male
  Weight: 62.2 kg

DRUGS (6)
  1. ALLEGRA [Concomitant]
     Active Substance: FEXOFENADINE HYDROCHLORIDE
     Dates: start: 20140220, end: 20140423
  2. INSULIN GLARGINE [Suspect]
     Active Substance: INSULIN GLARGINE
     Indication: TYPE 2 DIABETES MELLITUS
     Route: 058
     Dates: start: 20131202, end: 20140525
  3. MOHRUS [Concomitant]
     Active Substance: KETOPROFEN
     Indication: INTERVERTEBRAL DISC PROTRUSION
     Dosage: TAPE
     Dates: start: 20131008
  4. NIFLAN [Concomitant]
     Indication: CONJUNCTIVITIS ALLERGIC
     Dosage: SOLUTION
     Dates: start: 20130705
  5. SENNA [Concomitant]
     Active Substance: SENNA LEAF\SENNOSIDES\SENNOSIDES A AND B
     Dates: start: 20140210, end: 20140331
  6. SILODOSIN [Concomitant]
     Active Substance: SILODOSIN
     Indication: NOCTURIA
     Dates: start: 20130917

REACTIONS (1)
  - Prostate cancer [Not Recovered/Not Resolved]

NARRATIVE: CASE EVENT DATE: 20140526
